FAERS Safety Report 8312580-4 (Version None)
Quarter: 2012Q2

REPORT INFORMATION
  Report Type: 
  Country: None (occurrence: None)
  Receive Date: 20120424
  Receipt Date: 20120409
  Transmission Date: 20120825
  Serious: Yes (Hospitalization)
  Sender: FDA-Public Use
  Company Number: 2012MA004738

PATIENT
  Age: 56 Year
  Sex: Female

DRUGS (2)
  1. CARBIDOPA + LEVODOPA [Suspect]
     Dosage: ;TID;
     Dates: end: 19760201
  2. HALOPERIDOL [Concomitant]

REACTIONS (6)
  - RESPIRATORY ALKALOSIS [None]
  - GRUNTING [None]
  - SPEECH DISORDER [None]
  - RESPIRATORY DISORDER [None]
  - DYSKINESIA [None]
  - DYSPNOEA [None]
